FAERS Safety Report 8505674-1 (Version None)
Quarter: 2012Q3

REPORT INFORMATION
  Report Type: 
  Country: None (occurrence: None)
  Receive Date: 20120712
  Receipt Date: 20120703
  Transmission Date: 20120928
  Serious: Yes (Hospitalization)
  Sender: FDA-Public Use
  Company Number: US-ASTRAZENECA-2012SE45705

PATIENT
  Age: 79 Year
  Sex: Female

DRUGS (4)
  1. TOPROL-XL [Suspect]
     Route: 048
  2. DIABETES MEDICATION [Concomitant]
     Indication: DIABETES MELLITUS
  3. BLOOD PRESSURE MEDICATION [Concomitant]
  4. WATER PILL [Concomitant]

REACTIONS (5)
  - THROMBOSIS [None]
  - RED BLOOD CELL COUNT DECREASED [None]
  - ANAEMIA [None]
  - OEDEMA PERIPHERAL [None]
  - WEIGHT DECREASED [None]
